FAERS Safety Report 8334423-5 (Version None)
Quarter: 2012Q2

REPORT INFORMATION
  Report Type: 
  Country: None (occurrence: None)
  Receive Date: 20120503
  Receipt Date: 20110712
  Transmission Date: 20120825
  Serious: No
  Sender: FDA-Public Use
  Company Number: US-BAUSCH-2011BL004679

PATIENT
  Age: 69 Year
  Sex: Female

DRUGS (2)
  1. HORMONES AND RELATED AGENTS [Suspect]
     Indication: HORMONE THERAPY
     Route: 048
  2. LOTEMAX [Suspect]
     Indication: UVEITIS
     Route: 047
     Dates: start: 20110301, end: 20110704

REACTIONS (4)
  - NERVOUSNESS [None]
  - INSOMNIA [None]
  - ALOPECIA [None]
  - PSYCHOMOTOR HYPERACTIVITY [None]
